FAERS Safety Report 18206721 (Version 1)
Quarter: 2020Q3

REPORT INFORMATION
  Report Type: Spontaneous
  Country: FR (occurrence: FR)
  Receive Date: 20200828
  Receipt Date: 20200828
  Transmission Date: 20201103
  Serious: Yes (Hospitalization)
  Sender: FDA-Public Use
  Company Number: FR-ACCORD-197733

PATIENT
  Age: 74 Year
  Sex: Male
  Weight: 74.6 kg

DRUGS (7)
  1. OXALIPLATIN ACCORD [Suspect]
     Active Substance: OXALIPLATIN
     Indication: ADENOCARCINOMA PANCREAS
     Dosage: STRENGTH: 5 MG / ML
     Route: 041
     Dates: start: 20191127, end: 20200713
  2. IRINOTECAN MEDAC [Suspect]
     Active Substance: IRINOTECAN
     Indication: ADENOCARCINOMA PANCREAS
     Dosage: STRENGTH: 20 MG / ML
     Route: 041
     Dates: start: 20200713, end: 20200713
  3. ZOPHREN [Concomitant]
     Active Substance: ONDANSETRON
  4. FOLINIC ACID [Concomitant]
     Active Substance: LEUCOVORIN
  5. FLUOROURACIL ACCORD [Suspect]
     Active Substance: FLUOROURACIL
     Indication: ADENOCARCINOMA PANCREAS
     Dosage: STRENGTH: 50 MG / ML
     Route: 041
     Dates: start: 20200713, end: 20200714
  6. ATROPINE. [Concomitant]
     Active Substance: ATROPINE
  7. SOLU?MEDROL [Concomitant]
     Active Substance: METHYLPREDNISOLONE SODIUM SUCCINATE

REACTIONS (2)
  - Off label use [Unknown]
  - Pancytopenia [Recovering/Resolving]

NARRATIVE: CASE EVENT DATE: 20200721
